FAERS Safety Report 13408065 (Version 2)
Quarter: 2017Q2

REPORT INFORMATION
  Report Type: Spontaneous
  Country: UY (occurrence: UY)
  Receive Date: 20170406
  Receipt Date: 20170412
  Transmission Date: 20170830
  Serious: Yes (Death)
  Sender: FDA-Public Use
  Company Number: UY-ROCHE-1915720

PATIENT
  Age: 55 Year
  Sex: Female

DRUGS (1)
  1. DIAZEPAM. [Suspect]
     Active Substance: DIAZEPAM
     Indication: PRODUCT USED FOR UNKNOWN INDICATION
     Route: 065

REACTIONS (1)
  - Intracranial aneurysm [Fatal]

NARRATIVE: CASE EVENT DATE: 20170225
